FAERS Safety Report 21902040 (Version 1)
Quarter: 2023Q1

REPORT INFORMATION
  Report Type: Report from Study
  Country: DE (occurrence: DE)
  Receive Date: 20230124
  Receipt Date: 20230124
  Transmission Date: 20230417
  Serious: Yes (Hospitalization)
  Sender: FDA-Public Use
  Company Number: DE-BIOGEN-2023BI01182529

PATIENT
  Sex: Female

DRUGS (1)
  1. PLEGRIDY [Suspect]
     Active Substance: PEGINTERFERON BETA-1A
     Indication: Multiple sclerosis
     Route: 050
     Dates: start: 20190625

REACTIONS (4)
  - Aphasia [Recovered/Resolved with Sequelae]
  - Cerebrovascular accident [Unknown]
  - Visual impairment [Recovered/Resolved with Sequelae]
  - Periodontitis [Recovered/Resolved]

NARRATIVE: CASE EVENT DATE: 20220101
